FAERS Safety Report 6759460-3 (Version None)
Quarter: 2010Q2

REPORT INFORMATION
  Report Type: 
  Country: None (occurrence: None)
  Receive Date: 20100603
  Receipt Date: 20100520
  Transmission Date: 20101027
  Serious: Yes (Hospitalization)
  Sender: FDA-Public Use
  Company Number: A-US2010-36763

PATIENT
  Age: 75 Year
  Sex: Male

DRUGS (15)
  1. TRACLEER [Suspect]
     Indication: PULMONARY ARTERIAL HYPERTENSION
     Dosage: 62.5 MG, BID, ORAL
     Route: 048
     Dates: start: 20100324, end: 20100401
  2. ALBUTEROL (SALBUTAMOL SULFATE) [Concomitant]
  3. ASPIRIN [Concomitant]
  4. LIPITOR [Concomitant]
  5. BUMEX [Concomitant]
  6. COREG [Concomitant]
  7. ISOSORBIDE (ISOSORBIDE DINITRATE) [Concomitant]
  8. LANTUS [Concomitant]
  9. LEVOTHYROXINE SODIUM [Concomitant]
  10. LISINOPRIL (LISINOPRIL DIHYDRATE) [Concomitant]
  11. METFORMIN HCL [Concomitant]
  12. NITROGLYCERIN [Concomitant]
  13. NOVOLIN (INSULIN ISOPHANE, HUMAN BIOSYNTHETIC) [Concomitant]
  14. POTASSIUM (POTASSIUM GLUCONATE) [Concomitant]
  15. OXYGEN (OXYGEN) [Concomitant]

REACTIONS (6)
  - CARDIAC FAILURE CONGESTIVE [None]
  - CONDITION AGGRAVATED [None]
  - HEADACHE [None]
  - RENAL FAILURE ACUTE [None]
  - UPPER RESPIRATORY TRACT INFECTION [None]
  - VISION BLURRED [None]
